FAERS Safety Report 24446474 (Version 1)
Quarter: 2024Q4

REPORT INFORMATION
  Report Type: Spontaneous
  Country: TR (occurrence: TR)
  Receive Date: 20241016
  Receipt Date: 20241016
  Transmission Date: 20250115
  Serious: Yes (Other)
  Sender: PFIZER
  Company Number: TR-PFIZER INC-PV202400133767

PATIENT
  Age: 36 Year
  Sex: Male

DRUGS (2)
  1. CIBINQO [Suspect]
     Active Substance: ABROCITINIB
     Indication: Dermatitis atopic
     Dosage: 200 MG
     Dates: start: 202405
  2. CIBINQO [Suspect]
     Active Substance: ABROCITINIB
     Dosage: 200 MG
     Dates: start: 202409

REACTIONS (2)
  - Intervertebral disc protrusion [Unknown]
  - Nausea [Unknown]

NARRATIVE: CASE EVENT DATE: 20240101
